FAERS Safety Report 9066675 (Version 1)
Quarter: 2013Q1

REPORT INFORMATION
  Report Type: Report from Study
  Country: PR (occurrence: PR)
  Receive Date: 20130131
  Receipt Date: 20130131
  Transmission Date: 20140127
  Serious: No
  Sender: FDA-Public Use
  Company Number: PR-ABBOTT-12P-131-0918495-00

PATIENT
  Age: 60 None
  Sex: Female
  Weight: 73.55 kg

DRUGS (9)
  1. HUMIRA [Suspect]
     Indication: RHEUMATOID ARTHRITIS
     Route: 058
     Dates: start: 2011, end: 201206
  2. HUMIRA [Suspect]
     Indication: RHEUMATOID ARTHRITIS
     Dates: start: 201206, end: 201212
  3. ADVAIR [Concomitant]
     Indication: ASTHMA
     Route: 048
  4. SPIRIVA [Concomitant]
     Indication: ASTHMA
     Route: 048
  5. ALBUTEROL [Concomitant]
     Indication: ASTHMA
     Route: 048
  6. METFORMIN [Concomitant]
     Indication: DIABETES MELLITUS
     Route: 048
  7. HUMULIN [Concomitant]
     Indication: DIABETES MELLITUS
     Route: 058
  8. NORVASC [Concomitant]
     Indication: HYPERTENSION
     Route: 048
  9. TRAMADOL [Concomitant]
     Indication: ARTHRALGIA
     Route: 048

REACTIONS (3)
  - Osteoporosis [Not Recovered/Not Resolved]
  - Nasopharyngitis [Recovered/Resolved]
  - Pain [Not Recovered/Not Resolved]
